FAERS Safety Report 6763924-6 (Version None)
Quarter: 2010Q2

REPORT INFORMATION
  Report Type: 
  Country: None (occurrence: None)
  Receive Date: 20100610
  Receipt Date: 20100607
  Transmission Date: 20101027
  Serious: Yes (Hospitalization)
  Sender: FDA-Public Use
  Company Number: DE-BRISTOL-MYERS SQUIBB COMPANY-15138324

PATIENT
  Age: 64 Year
  Sex: Male
  Weight: 59 kg

DRUGS (8)
  1. CETUXIMAB [Suspect]
     Dosage: ABS DOSE 375 MG;3 DOSES,LAST(28MAY10)
     Route: 042
     Dates: start: 20100520
  2. CARBOPLATIN [Suspect]
     Dosage: AUC 5
     Route: 042
     Dates: start: 20100520
  3. GEMCITABINE HCL [Suspect]
     Dosage: ABS DOSE 1767 MG;2 DOSES (LAST:28MAY10)
     Route: 042
     Dates: start: 20100520
  4. TORSEMIDE [Concomitant]
     Indication: HYPERTENSION
  5. ASPIRIN [Concomitant]
  6. DELIX [Concomitant]
     Indication: HYPERTENSION
  7. SYMBICORT [Concomitant]
     Indication: CHRONIC OBSTRUCTIVE PULMONARY DISEASE
  8. SPIRIVA [Concomitant]
     Indication: CHRONIC OBSTRUCTIVE PULMONARY DISEASE

REACTIONS (1)
  - PYREXIA [None]
